FAERS Safety Report 11499586 (Version 5)
Quarter: 2017Q1

REPORT INFORMATION
  Report Type: Report from Study
  Country: GB (occurrence: GB)
  Receive Date: 20150914
  Receipt Date: 20170227
  Transmission Date: 20170428
  Serious: Yes (Other)
  Sender: FDA-Public Use
  Company Number: GB-UCBSA-2015027471

PATIENT
  Age: 50 Year
  Sex: Female

DRUGS (2)
  1. CERTOLIZUMAB PEGOL [Suspect]
     Active Substance: CERTOLIZUMAB PEGOL
     Dosage: 200MG EV 2 WEEKS(QOW)
     Route: 058
     Dates: start: 201509
  2. CERTOLIZUMAB PEGOL [Suspect]
     Active Substance: CERTOLIZUMAB PEGOL
     Indication: RHEUMATOID ARTHRITIS
     Dosage: 400 MG, EV 2 WEEKS(QOW)
     Route: 058
     Dates: start: 20150812, end: 201509

REACTIONS (6)
  - Inappropriate schedule of drug administration [Unknown]
  - Furuncle [Unknown]
  - Breast mass [Unknown]
  - Pain [Unknown]
  - Drug dose omission [Unknown]
  - Erythema [Unknown]

NARRATIVE: CASE EVENT DATE: 201508
